FAERS Safety Report 16229761 (Version 6)
Quarter: 2020Q3

REPORT INFORMATION
  Report Type: Spontaneous
  Country: ES (occurrence: ES)
  Receive Date: 20190423
  Receipt Date: 20200709
  Transmission Date: 20201102
  Serious: Yes (Hospitalization, Other)
  Sender: FDA-Public Use
  Company Number: ES-PFIZER INC-2019167894

PATIENT
  Age: 62 Year
  Sex: Female
  Weight: 48 kg

DRUGS (24)
  1. AMLODIPINE [Concomitant]
     Active Substance: AMLODIPINE BESYLATE
     Indication: GENERAL PHYSICAL CONDITION
     Dosage: UNK
     Dates: start: 20181001
  2. NISTATIN [Concomitant]
     Active Substance: NYSTATIN
     Indication: GENERAL PHYSICAL CONDITION
     Dosage: UNK
     Dates: start: 20181012
  3. MICAFUNGINA [Concomitant]
     Active Substance: MICAFUNGIN
     Indication: GENERAL PHYSICAL CONDITION
     Dosage: UNK
     Dates: start: 20181005
  4. DEXCHLORPHENIRAMINE [Concomitant]
     Active Substance: DEXCHLORPHENIRAMINE
     Indication: GENERAL PHYSICAL CONDITION
     Dosage: UNK
     Dates: start: 20181003
  5. NISTATIN [Concomitant]
     Active Substance: NYSTATIN
     Indication: PROPHYLAXIS
  6. METOCLOPRAMIDE. [Concomitant]
     Active Substance: METOCLOPRAMIDE
     Indication: GENERAL PHYSICAL CONDITION
     Dosage: UNK
     Dates: start: 20181001
  7. ACICLOVIR [Concomitant]
     Active Substance: ACYCLOVIR
     Indication: FEBRILE NEUTROPENIA
     Dosage: UNK
     Dates: start: 20181230
  8. METOCLOPRAMIDE. [Concomitant]
     Active Substance: METOCLOPRAMIDE
     Indication: PROPHYLAXIS
  9. MEROPENEM. [Concomitant]
     Active Substance: MEROPENEM
     Indication: GENERAL PHYSICAL CONDITION
     Dosage: UNK
     Dates: start: 20181006
  10. CYTARABINE. [Suspect]
     Active Substance: CYTARABINE
     Indication: ACUTE MYELOID LEUKAEMIA
     Dosage: 100 MG/M2, 1X/DAY
     Route: 042
     Dates: start: 20181003
  11. ISAVUCONAZOLE [Concomitant]
     Active Substance: ISAVUCONAZOLE
     Indication: FEBRILE NEUTROPENIA
     Dosage: UNK
     Dates: start: 20181230
  12. MICAFUNGINA [Concomitant]
     Active Substance: MICAFUNGIN
     Indication: PROPHYLAXIS
  13. MEPIVACAINE [Concomitant]
     Active Substance: MEPIVACAINE HYDROCHLORIDE
     Indication: GENERAL PHYSICAL CONDITION
     Dosage: UNK
     Dates: start: 20181013
  14. IDARUBICIN HCL [Suspect]
     Active Substance: IDARUBICIN HYDROCHLORIDE
     Indication: ACUTE MYELOID LEUKAEMIA
     Dosage: 12 MG/M2, 1X/DAY
     Route: 042
     Dates: start: 20181003
  15. IDARUBICIN HCL [Suspect]
     Active Substance: IDARUBICIN HYDROCHLORIDE
     Indication: ACUTE MYELOID LEUKAEMIA
  16. BLINDED THERAPY [Suspect]
     Active Substance: INVESTIGATIONAL PRODUCT
     Indication: ACUTE MYELOID LEUKAEMIA
     Dosage: UNK
     Route: 048
     Dates: start: 20181010
  17. PARACETAMOL [Concomitant]
     Active Substance: ACETAMINOPHEN
     Indication: BACK PAIN
  18. AMLODIPINE [Concomitant]
     Active Substance: AMLODIPINE BESYLATE
     Indication: PROPHYLAXIS
  19. PARACETAMOL [Concomitant]
     Active Substance: ACETAMINOPHEN
     Indication: PYREXIA
     Dosage: UNK
     Dates: start: 20181002
  20. VALGANCICLOVIR. [Suspect]
     Active Substance: VALGANCICLOVIR
     Dosage: UNK
  21. RANITIDINE. [Concomitant]
     Active Substance: RANITIDINE
     Indication: FEBRILE NEUTROPENIA
     Dosage: UNK
     Dates: start: 20181230
  22. DEXCHLORPHENIRAMINE [Concomitant]
     Active Substance: DEXCHLORPHENIRAMINE
     Indication: PROPHYLAXIS
  23. MEPIVACAINE [Concomitant]
     Active Substance: MEPIVACAINE HYDROCHLORIDE
     Indication: PROPHYLAXIS
  24. MEROPENEM. [Concomitant]
     Active Substance: MEROPENEM
     Indication: PROPHYLAXIS

REACTIONS (1)
  - Cytopenia [Recovered/Resolved]

NARRATIVE: CASE EVENT DATE: 20190325
